FAERS Safety Report 17289386 (Version 1)
Quarter: 2020Q1

REPORT INFORMATION
  Report Type: Spontaneous
  Country: US (occurrence: US)
  Receive Date: 20200120
  Receipt Date: 20200120
  Transmission Date: 20200409
  Serious: No
  Sender: FDA-Public Use
  Company Number: US-HORIZON-PEN-0011-2020

PATIENT
  Age: 24 Year
  Sex: Female

DRUGS (2)
  1. METHYLPREDNISOLONE. [Concomitant]
     Active Substance: METHYLPREDNISOLONE
  2. PENNSAID [Suspect]
     Active Substance: DICLOFENAC SODIUM
     Indication: JOINT INJURY
     Dosage: APPLY TWO PUMPS TO AFFECTED AREA TWICE DAILY
     Dates: start: 20200107, end: 20200107

REACTIONS (2)
  - Off label use [Recovered/Resolved]
  - Burning sensation [Recovered/Resolved]

NARRATIVE: CASE EVENT DATE: 20200107
